FAERS Safety Report 6722804-2 (Version None)
Quarter: 2010Q2

REPORT INFORMATION
  Report Type: 
  Country: None (occurrence: None)
  Receive Date: 20100512
  Receipt Date: 20100512
  Transmission Date: 20101027
  Serious: Yes (Other)
  Sender: FDA-Public Use
  Company Number: None

PATIENT
  Age: 62 Year
  Sex: Female
  Weight: 83.9154 kg

DRUGS (2)
  1. AUGMENTIN '875' [Suspect]
     Indication: PRURITUS
     Dosage: ONE TABLET TWICE A DAY PO
     Route: 047
     Dates: start: 20100429, end: 20100506
  2. AUGMENTIN '875' [Suspect]
     Indication: SINUSITIS
     Dosage: ONE TABLET TWICE A DAY PO
     Route: 047
     Dates: start: 20100429, end: 20100506

REACTIONS (1)
  - PRURITUS GENERALISED [None]
